FAERS Safety Report 19082903 (Version 1)
Quarter: 2021Q2

REPORT INFORMATION
  Report Type: Spontaneous
  Country: US (occurrence: US)
  Receive Date: 20210401
  Receipt Date: 20210401
  Transmission Date: 20210717
  Serious: Yes (Hospitalization)
  Sender: FDA-Public Use
  Company Number: None

PATIENT
  Age: 50 Year
  Sex: Female
  Weight: 58 kg

DRUGS (8)
  1. CLOTRIMAZOLE. [Concomitant]
     Active Substance: CLOTRIMAZOLE
  2. LEVETIRACETEM [Concomitant]
  3. CYTOXAN [Concomitant]
     Active Substance: CYCLOPHOSPHAMIDE
     Dates: start: 20200826, end: 20200828
  4. FLUCONAZOLE. [Concomitant]
     Active Substance: FLUCONAZOLE
  5. ACYCLOVIR. [Concomitant]
     Active Substance: ACYCLOVIR
  6. SULFAMETHOXAZOLE?TRIMETHOPRIM DS [Concomitant]
     Active Substance: SULFAMETHOXAZOLE\TRIMETHOPRIM
  7. YESCARTA [Suspect]
     Active Substance: AXICABTAGENE CILOLEUCEL
     Indication: DIFFUSE LARGE B-CELL LYMPHOMA
     Dosage: ?          OTHER FREQUENCY:ONCE;?
     Route: 042
     Dates: start: 20200831, end: 20200831
  8. FLUDARABINE [Concomitant]
     Active Substance: FLUDARABINE PHOSPHATE
     Dates: start: 20200826, end: 20200828

REACTIONS (10)
  - Condition aggravated [None]
  - Mental status changes [None]
  - Neurotoxicity [None]
  - Metabolic disorder [None]
  - Urinary incontinence [None]
  - Aphasia [None]
  - Pyrexia [None]
  - Tachycardia [None]
  - Hypotension [None]
  - Blood pressure systolic decreased [None]

NARRATIVE: CASE EVENT DATE: 20200901
